FAERS Safety Report 11706196 (Version 1)
Quarter: 2015Q4

REPORT INFORMATION
  Report Type: Spontaneous
  Country: US (occurrence: US)
  Receive Date: 20151104
  Receipt Date: 20151104
  Transmission Date: 20160304
  Serious: No
  Sender: FDA-Public Use
  Company Number: US-ELI_LILLY_AND_COMPANY-US201101007409

PATIENT
  Age: 53 Year
  Sex: Female

DRUGS (19)
  1. CALCIUM [Concomitant]
     Active Substance: CALCIUM
  2. REMERON [Concomitant]
     Active Substance: MIRTAZAPINE
  3. PERCOCET [Concomitant]
     Active Substance: ACETAMINOPHEN\OXYCODONE HYDROCHLORIDE
     Indication: PAIN
     Dosage: UNK, EVERY 6 HRS
  4. SINGULAIR [Concomitant]
     Active Substance: MONTELUKAST SODIUM
  5. ZOLOFT [Concomitant]
     Active Substance: SERTRALINE HYDROCHLORIDE
     Dosage: 200 MG, DAILY (1/D)
  6. METANX [Concomitant]
     Active Substance: LEVOMEFOLATE CALCIUM\METHYLCOBALAMIN\PYRIDOXAL PHOSPHATE ANHYDROUS
  7. MULTIVITAMIN [Concomitant]
     Active Substance: VITAMINS
  8. PRAVASTATIN [Concomitant]
     Active Substance: PRAVASTATIN\PRAVASTATIN SODIUM
     Indication: BLOOD CHOLESTEROL
     Dosage: 80 MG, UNK
  9. XANAX [Concomitant]
     Active Substance: ALPRAZOLAM
     Dosage: UNK, AS NEEDED
  10. ESTRADIOL. [Concomitant]
     Active Substance: ESTRADIOL
     Dosage: 2 MG, UNK
  11. ADVAIR HFA [Concomitant]
     Active Substance: FLUTICASONE PROPIONATE\SALMETEROL XINAFOATE
  12. ALTACE [Concomitant]
     Active Substance: RAMIPRIL
     Indication: BLOOD PRESSURE MEASUREMENT
  13. COUMADIN [Concomitant]
     Active Substance: WARFARIN SODIUM
     Indication: THROMBOSIS
     Dosage: 4 MG, DAILY (1/D)
  14. BACLOFEN. [Concomitant]
     Active Substance: BACLOFEN
     Dosage: 10 MG, UNK
  15. BETHANECHOL CHLORIDE. [Concomitant]
     Active Substance: BETHANECHOL CHLORIDE
     Dosage: UNK, 4/D
  16. FORTEO [Suspect]
     Active Substance: TERIPARATIDE
     Indication: OSTEOPOROSIS
     Dosage: 20 UG, DAILY (1/D)
     Dates: start: 201010
  17. PROVENTIL                               /USA/ [Concomitant]
  18. PROTONIX [Concomitant]
     Active Substance: PANTOPRAZOLE SODIUM
     Dosage: 40 MG, UNK
  19. VIVAGLOBIN [Concomitant]
     Active Substance: HUMAN IMMUNOGLOBULIN G
     Indication: AUTOIMMUNE DISORDER
     Dosage: UNK, WEEKLY (1/W)

REACTIONS (10)
  - Cough [Unknown]
  - Back pain [Unknown]
  - Bronchial disorder [Unknown]
  - Nausea [Unknown]
  - Compression fracture [Unknown]
  - Fall [Unknown]
  - Hyperhidrosis [Unknown]
  - Dizziness [Unknown]
  - Bone disorder [Unknown]
  - Upper respiratory tract infection [Not Recovered/Not Resolved]

NARRATIVE: CASE EVENT DATE: 201012
